FAERS Safety Report 5642018-7 (Version None)
Quarter: 2008Q1

REPORT INFORMATION
  Report Type: 
  Country: None (occurrence: None)
  Receive Date: 20080227
  Receipt Date: 20080215
  Transmission Date: 20080703
  Serious: Yes (Death, Other)
  Sender: FDA-Public Use
  Company Number: JP-PFIZER INC-2008014198

PATIENT
  Age: 67 Year
  Sex: Male
  Weight: 75 kg

DRUGS (3)
  1. SOLU-CORTEF [Suspect]
     Indication: PULMONARY FIBROSIS
     Dosage: DAILY DOSE:100MG
  2. SOLU-MEDROL [Suspect]
     Indication: ACUTE RESPIRATORY DISTRESS SYNDROME
     Dosage: DAILY DOSE:160MG
  3. PREDNISOLONE [Suspect]
     Indication: PULMONARY FIBROSIS

REACTIONS (4)
  - ACUTE RESPIRATORY DISTRESS SYNDROME [None]
  - MEDIASTINITIS [None]
  - MYOCARDIAL ISCHAEMIA [None]
  - PNEUMONIA [None]
